FAERS Safety Report 8393566-0 (Version None)
Quarter: 2012Q2

REPORT INFORMATION
  Report Type: 
  Country: None (occurrence: None)
  Receive Date: 20120530
  Receipt Date: 20120515
  Transmission Date: 20120825
  Serious: Yes (Hospitalization, Congenital Anomaly, Other)
  Sender: FDA-Public Use
  Company Number: DE-AMGEN-DEUCT2012030085

PATIENT
  Age: 2 Day

DRUGS (1)
  1. ETANERCEPT [Suspect]
     Indication: SPONDYLITIS
     Dosage: 25 MG, 2 TIMES/WK
     Route: 064
     Dates: start: 20080131

REACTIONS (2)
  - HEART DISEASE CONGENITAL [None]
  - EXPOSURE VIA FATHER [None]
